FAERS Safety Report 11363486 (Version 2)
Quarter: 2015Q3

REPORT INFORMATION
  Report Type: Report from Study
  Country: DE (occurrence: DE)
  Receive Date: 20150811
  Receipt Date: 20150918
  Transmission Date: 20151125
  Serious: Yes (Other)
  Sender: FDA-Public Use
  Company Number: DE-ROCHE-1615091

PATIENT
  Age: 33 Year
  Sex: Female

DRUGS (3)
  1. ZANTAC [Concomitant]
     Active Substance: RANITIDINE HYDROCHLORIDE
     Indication: IMMUNOSUPPRESSION
     Route: 048
  2. CICLOSPORIN [Concomitant]
     Active Substance: CYCLOSPORINE
     Indication: IMMUNOSUPPRESSION
     Route: 048
  3. VALGANCICLOVIR [Suspect]
     Active Substance: VALGANCICLOVIR
     Indication: CYTOMEGALOVIRUS INFECTION
     Route: 048
     Dates: start: 2008, end: 20080612

REACTIONS (2)
  - Habitual abortion [Unknown]
  - Maternal exposure timing unspecified [Unknown]
